FAERS Safety Report 17812433 (Version 3)
Quarter: 2020Q2

REPORT INFORMATION
  Report Type: Report from Study
  Country: BR (occurrence: BR)
  Receive Date: 20200521
  Receipt Date: 20200615
  Transmission Date: 20200714
  Serious: Yes (Other)
  Sender: FDA-Public Use
  Company Number: NVSC2020BR093817

PATIENT
  Age: 2 Year
  Sex: Female

DRUGS (17)
  1. ILARIS [Suspect]
     Active Substance: CANAKINUMAB
     Dosage: 4 MG/KG EVERY 28 DAYS
     Route: 058
     Dates: start: 20200104
  2. ILARIS [Suspect]
     Active Substance: CANAKINUMAB
     Dosage: 6 MG/KG EVERY 28 DAYS
     Route: 058
     Dates: start: 20200425
  3. CELLCEPT [Concomitant]
     Active Substance: MYCOPHENOLATE MOFETIL\MYCOPHENOLATE MOFETIL HYDROCHLORIDE
     Indication: IMMUNOSUPPRESSION
     Dosage: UNK
     Route: 065
     Dates: start: 202002
  4. LOSEC [Concomitant]
     Active Substance: OMEPRAZOLE
     Indication: GASTROOESOPHAGEAL REFLUX DISEASE
     Dosage: 10 MG, Q12H
     Route: 048
     Dates: start: 201705
  5. PULMICORT TURBUHALER [Concomitant]
     Active Substance: BUDESONIDE
     Indication: EOSINOPHILIC OESOPHAGITIS
     Dosage: UNK, Q12H ONE AMPOULE OF 0.25
     Route: 048
     Dates: start: 201807
  6. ILARIS [Suspect]
     Active Substance: CANAKINUMAB
     Dosage: 4 MG/KG EVERY 28 DAYS
     Route: 058
     Dates: start: 20191011
  7. ILARIS [Suspect]
     Active Substance: CANAKINUMAB
     Indication: AUTOINFLAMMATORY DISEASE
     Dosage: 4 MG/KG, Q4W
     Route: 065
     Dates: start: 20190914
  8. ILARIS [Suspect]
     Active Substance: CANAKINUMAB
     Dosage: 4 MG/KG EVERY 28 DAYS
     Route: 058
     Dates: start: 20200229
  9. ILARIS [Suspect]
     Active Substance: CANAKINUMAB
     Dosage: 2 MG/KG EVERY 28 DAYS
     Route: 058
     Dates: start: 20190914
  10. ILARIS [Suspect]
     Active Substance: CANAKINUMAB
     Dosage: 4 MG/KG EVERY 28 DAYS
     Route: 058
     Dates: start: 20191109
  11. ILARIS [Suspect]
     Active Substance: CANAKINUMAB
     Dosage: 4 MG/KG EVERY 28 DAYS
     Route: 058
     Dates: start: 20200201
  12. CELLCEPT [Concomitant]
     Active Substance: MYCOPHENOLATE MOFETIL\MYCOPHENOLATE MOFETIL HYDROCHLORIDE
     Dosage: 250 MG, Q24H
     Route: 048
     Dates: start: 202003
  13. FLIXONASE [Concomitant]
     Active Substance: FLUTICASONE PROPIONATE
     Indication: RHINITIS
     Dosage: UNK, Q12H ONE SPRAY IN THE NOSTRIL
     Route: 048
     Dates: start: 201710
  14. ILARIS [Suspect]
     Active Substance: CANAKINUMAB
     Dosage: 6 MG/KG EVERY 28 DAYS
     Route: 058
     Dates: start: 20200402
  15. ILARIS [Suspect]
     Active Substance: CANAKINUMAB
     Dosage: 4 MG/KG EVERY 28 DAYS
     Route: 058
     Dates: start: 20191207
  16. ILARIS [Suspect]
     Active Substance: CANAKINUMAB
     Dosage: 150 MG/ML
     Route: 065
  17. ENTOCORT [Concomitant]
     Active Substance: BUDESONIDE
     Indication: GASTROINTESTINAL INFLAMMATION
     Dosage: 3 MG, Q12H
     Route: 048
     Dates: start: 201810

REACTIONS (31)
  - Pyrexia [Unknown]
  - Retching [Unknown]
  - Dysphagia [Not Recovered/Not Resolved]
  - Administration site irritation [Not Recovered/Not Resolved]
  - Inflammation [Unknown]
  - Serum amyloid A protein increased [Not Recovered/Not Resolved]
  - Rash [Unknown]
  - Sleep disorder [Unknown]
  - Decreased appetite [Unknown]
  - Vomiting [Unknown]
  - Gastrooesophageal reflux disease [Recovering/Resolving]
  - Pigmentation disorder [Unknown]
  - Dermatitis [Unknown]
  - Fall [Unknown]
  - Skin plaque [Unknown]
  - Pain [Unknown]
  - Product preparation issue [Unknown]
  - Underdose [Unknown]
  - Eating disorder [Unknown]
  - Abnormal behaviour [Not Recovered/Not Resolved]
  - Red blood cell sedimentation rate [Not Recovered/Not Resolved]
  - Dehydration [Unknown]
  - Skin irritation [Unknown]
  - Abdominal distension [Unknown]
  - Diarrhoea [Recovering/Resolving]
  - Malaise [Recovered/Resolved]
  - Faecal calprotectin increased [Unknown]
  - Incorrect dose administered [Unknown]
  - Abdominal pain [Recovering/Resolving]
  - C-reactive protein abnormal [Not Recovered/Not Resolved]
  - Drug ineffective [Recovering/Resolving]

NARRATIVE: CASE EVENT DATE: 20191211
